FAERS Safety Report 7876568-X (Version None)
Quarter: 2011Q4

REPORT INFORMATION
  Report Type: 
  Country: None (occurrence: None)
  Receive Date: 20111031
  Receipt Date: 20111021
  Transmission Date: 20120403
  Serious: No
  Sender: FDA-Public Use
  Company Number: US-B.I. PHARMACEUTICALS,INC./RIDGEFIELD-2011-BP-24721BP

PATIENT
  Sex: Male

DRUGS (5)
  1. DIGOXIN [Concomitant]
     Indication: ATRIAL FIBRILLATION
  2. DILTIAZEM HCL [Concomitant]
     Indication: ATRIAL FIBRILLATION
  3. OMEPRAZOLE [Concomitant]
     Indication: GASTROOESOPHAGEAL REFLUX DISEASE
  4. SIMVASTATIN [Concomitant]
     Indication: BLOOD CHOLESTEROL INCREASED
  5. PRADAXA [Suspect]
     Indication: ATRIAL FIBRILLATION
     Dosage: 150 MG
     Route: 048
     Dates: start: 20111014

REACTIONS (3)
  - DYSPNOEA [None]
  - BACK PAIN [None]
  - RASH [None]
